FAERS Safety Report 6953731-3 (Version None)
Quarter: 2010Q3

REPORT INFORMATION
  Report Type: 
  Country: None (occurrence: None)
  Receive Date: 20100829
  Receipt Date: 20100623
  Transmission Date: 20110219
  Serious: No
  Sender: FDA-Public Use
  Company Number: US-ABBOTT-10P-163-0653191-00

PATIENT
  Sex: Male
  Weight: 102.15 kg

DRUGS (3)
  1. NIASPAN [Suspect]
     Indication: LOW DENSITY LIPOPROTEIN INCREASED
     Dates: start: 20100614, end: 20100621
  2. TRILIPIX [Concomitant]
     Indication: LOW DENSITY LIPOPROTEIN INCREASED
  3. CRESTOR [Concomitant]
     Indication: LOW DENSITY LIPOPROTEIN INCREASED

REACTIONS (1)
  - HAEMATOCHEZIA [None]
